FAERS Safety Report 16363285 (Version 1)
Quarter: 2019Q3

REPORT INFORMATION
  Report Type: Spontaneous
  Country: GB (occurrence: GB)
  Receive Date: 20190527
  Receipt Date: 20190527
  Transmission Date: 20191004
  Serious: Yes (Other)
  Sender: FDA-Public Use
  Company Number: None

PATIENT
  Age: 11 Year
  Sex: Male
  Weight: 21.6 kg

DRUGS (4)
  1. BECATIDE [Concomitant]
  2. OMEPRAZOLE PRN [Concomitant]
  3. ANTIHISTAMINE PRN [Concomitant]
  4. MONTELUKAST [Suspect]
     Active Substance: MONTELUKAST SODIUM
     Indication: ASTHMA

REACTIONS (4)
  - Anxiety [None]
  - Aggression [None]
  - Enuresis [None]
  - Suicidal ideation [None]

NARRATIVE: CASE EVENT DATE: 20180808
